FAERS Safety Report 18058851 (Version 1)
Quarter: 2020Q3

REPORT INFORMATION
  Report Type: Spontaneous
  Country: PL (occurrence: PL)
  Receive Date: 20200723
  Receipt Date: 20200723
  Transmission Date: 20201103
  Serious: Yes (Other)
  Sender: FDA-Public Use
  Company Number: PL-TEVA-2020-PL-1803893

PATIENT
  Age: 68 Year
  Sex: Female
  Weight: 80 kg

DRUGS (4)
  1. CALCIUM FOLINATE [Suspect]
     Active Substance: LEUCOVORIN CALCIUM
     Indication: COLON CANCER
     Dosage: DOSE: 386; DOSE UNIT: NOT SPECIFIED
     Route: 042
     Dates: start: 20171002, end: 20171004
  2. FLUOROURACIL. [Suspect]
     Active Substance: FLUOROURACIL
     Indication: COLON CANCER
     Dosage: DOSE: 772; DOSE UNIT: NOT SPECIFIED
     Route: 042
     Dates: start: 20171002, end: 20171004
  3. FLUOROURACIL. [Suspect]
     Active Substance: FLUOROURACIL
     Dosage: DOSE: 1150; DOSE UNIT: NOT SPECIFIED
     Route: 042
     Dates: start: 20171002, end: 20171004
  4. IRINOTECAN [Suspect]
     Active Substance: IRINOTECAN
     Indication: COLON CANCER
     Dosage: DOSE: 277; DOSE UNIT: NOT SPECIFIED
     Route: 042
     Dates: start: 20171002, end: 20171004

REACTIONS (1)
  - Neutropenia [Recovering/Resolving]

NARRATIVE: CASE EVENT DATE: 20171016
